FAERS Safety Report 7652952-4 (Version None)
Quarter: 2011Q3

REPORT INFORMATION
  Report Type: 
  Country: None (occurrence: None)
  Receive Date: 20110803
  Receipt Date: 20110726
  Transmission Date: 20111222
  Serious: Yes (Hospitalization)
  Sender: FDA-Public Use
  Company Number: CA-ROCHE-780607

PATIENT
  Sex: Female
  Weight: 58.6 kg

DRUGS (12)
  1. TRASTUZUMAB [Suspect]
     Dosage: 6 MG/KG EVERY 3 WEEKS MAINTENANCE DOSE
     Route: 042
     Dates: start: 20100902, end: 20110526
  2. IMOVAN [Concomitant]
     Dates: start: 20101001
  3. TRASTUZUMAB [Suspect]
     Dosage: MOST RECENT DOSE ON 07 JULY 2011
     Route: 042
     Dates: start: 20110707
  4. XALATAN [Concomitant]
     Dates: start: 20100219
  5. CARBOPLATIN [Suspect]
     Dosage: FORM :VIAL, 6 AUC
     Route: 042
     Dates: start: 20100812
  6. FEMARA [Concomitant]
     Dates: start: 20110303
  7. TIMOPTIC [Concomitant]
     Dates: start: 20100219
  8. TRASTUZUMAB [Suspect]
     Dosage: 8 MG/KG LOADING DOSE  FORM: VIAL
     Route: 042
     Dates: start: 20100812
  9. GLUCOSAMINE [Concomitant]
     Dosage: DOSE REPORTED AS:  TDD- 2 CO
     Dates: start: 19950101
  10. CALCIUM ACETATE [Concomitant]
     Dosage: DOSE REPORTED AS: TDD 2 CO. DRUG REPORTED AS C+
     Dates: start: 19950101
  11. DOCETAXEL [Suspect]
     Dosage: FORM: VIAL, 75 MG/M2
     Route: 042
     Dates: start: 20100812
  12. VITAMIN E [Concomitant]
     Dosage: DOSE REPORTED AS : TDD 1 CO
     Dates: start: 19950101

REACTIONS (1)
  - COLITIS ULCERATIVE [None]
